FAERS Safety Report 24164749 (Version 4)
Quarter: 2024Q3

REPORT INFORMATION
  Report Type: Spontaneous
  Country: BR (occurrence: BR)
  Receive Date: 20240801
  Receipt Date: 20240829
  Transmission Date: 20241017
  Serious: Yes (Death, Hospitalization)
  Sender: JOHNSON AND JOHNSON
  Company Number: BR-JNJFOC-20240777263

PATIENT
  Sex: Male

DRUGS (24)
  1. TALVEY [Suspect]
     Active Substance: TALQUETAMAB-TGVS
     Indication: Plasma cell myeloma
     Dosage: 3MG INJ FA 1.5ML
     Route: 058
  2. TALVEY [Suspect]
     Active Substance: TALQUETAMAB-TGVS
     Dosage: 40MG INJ FA 1ML
     Route: 058
  3. TALVEY [Suspect]
     Active Substance: TALQUETAMAB-TGVS
     Dosage: FIRST DOSE
     Route: 058
     Dates: start: 20240712
  4. TALVEY [Suspect]
     Active Substance: TALQUETAMAB-TGVS
     Dosage: SECOND DOSE
     Route: 058
     Dates: start: 20240714
  5. TALVEY [Suspect]
     Active Substance: TALQUETAMAB-TGVS
     Dosage: THIRD DOSE
     Route: 058
     Dates: start: 20240716
  6. TALVEY [Suspect]
     Active Substance: TALQUETAMAB-TGVS
     Dosage: FOURTH DOSE
     Route: 058
     Dates: start: 20240718
  7. FENTANYL [Concomitant]
     Active Substance: FENTANYL\FENTANYL CITRATE
     Indication: Product used for unknown indication
     Route: 065
  8. HEMOFOL [Concomitant]
  9. INSULIN NOS [Concomitant]
     Active Substance: INSULIN NOS
  10. ALLOPURINOL [Concomitant]
     Active Substance: ALLOPURINOL
  11. AMLODIPINE [Concomitant]
     Active Substance: AMLODIPINE BESYLATE
  12. ACYCLOVIR [Concomitant]
     Active Substance: ACYCLOVIR
  13. BACTRIM [Concomitant]
     Active Substance: SULFAMETHOXAZOLE\TRIMETHOPRIM
     Dosage: 800MG+160MG
  14. HEMAX [ERYTHROPOIETIN] [Concomitant]
     Dosage: 4000UI FA SC
  15. PANTOPRAZOLE [Concomitant]
     Active Substance: PANTOPRAZOLE
  16. SIMETHICONE (DIMETHICONE) [Concomitant]
     Active Substance: DIMETHICONE
  17. LINAGLIPTIN [Concomitant]
     Active Substance: LINAGLIPTIN
  18. DICLOFENAC SODIUM [Concomitant]
     Active Substance: DICLOFENAC\DICLOFENAC SODIUM
  19. OXYMETAZOLINE HYDROCHLORIDE [Concomitant]
     Active Substance: OXYMETAZOLINE HYDROCHLORIDE
  20. SODIUM CHLORIDE [Concomitant]
     Active Substance: SODIUM CHLORIDE
     Dosage: 6MG/G NASAL GEL
  21. DEXTRAN 70\HYPROMELLOSES [Concomitant]
     Active Substance: DEXTRAN 70\HYPROMELLOSES
  22. BISACODYL [Concomitant]
     Active Substance: BISACODYL
     Dosage: 7.5MG/ML
  23. HERBALS [Concomitant]
     Active Substance: HERBALS
  24. MAGNESIUM OXIDE [Concomitant]
     Active Substance: MAGNESIUM OXIDE

REACTIONS (3)
  - Cardio-respiratory arrest [Fatal]
  - Haematemesis [Fatal]
  - Dysgeusia [Not Recovered/Not Resolved]
